FAERS Safety Report 14299664 (Version 2)
Quarter: 2018Q2

REPORT INFORMATION
  Report Type: Spontaneous
  Country: DE (occurrence: DE)
  Receive Date: 20171219
  Receipt Date: 20180524
  Transmission Date: 20180711
  Serious: Yes (Death, Hospitalization, Other)
  Sender: FDA-Public Use
  Company Number: DE-WEST-WARD PHARMACEUTICALS CORP.-DE-H14001-17-04943

PATIENT
  Age: 38 Year
  Sex: Female
  Weight: 97 kg

DRUGS (17)
  1. METHYLPREDNISOLONE. [Suspect]
     Active Substance: METHYLPREDNISOLONE
     Indication: PROPHYLAXIS
     Route: 042
     Dates: start: 20160418, end: 20160420
  2. MONO-EMBOLEX [Suspect]
     Active Substance: CERTOPARIN SODIUM
     Indication: THROMBOSIS PROPHYLAXIS
     Route: 058
     Dates: start: 20160418
  3. VESIKUR [Concomitant]
     Active Substance: SOLIFENACIN SUCCINATE
     Indication: URGE INCONTINENCE
     Dosage: (1)
     Route: 065
  4. MONO-EMBOLEX [Suspect]
     Active Substance: CERTOPARIN SODIUM
     Dosage: ()
     Route: 065
     Dates: start: 201604, end: 201604
  5. TAVEGIL [Concomitant]
     Active Substance: CLEMASTINE FUMARATE
     Indication: PROPHYLAXIS
     Dosage: DOSAGE TEXT: 1-0-0 (1)
     Route: 042
     Dates: start: 20160418, end: 20160420
  6. CETIRIZINE [Concomitant]
     Active Substance: CETIRIZINE HYDROCHLORIDE
     Indication: PRODUCT USED FOR UNKNOWN INDICATION
     Route: 065
     Dates: start: 20160418
  7. TAVANIC [Concomitant]
     Active Substance: LEVOFLOXACIN
     Indication: URINARY TRACT INFECTION
     Route: 048
     Dates: start: 20160418, end: 20160420
  8. LEMTRADA [Suspect]
     Active Substance: ALEMTUZUMAB
     Indication: MULTIPLE SCLEROSIS
     Route: 041
     Dates: start: 20160418, end: 20160420
  9. LEMTRADA [Suspect]
     Active Substance: ALEMTUZUMAB
     Indication: MULTIPLE SCLEROSIS
     Route: 042
     Dates: start: 20160422, end: 201604
  10. PARACETAMOL [Suspect]
     Active Substance: ACETAMINOPHEN
     Indication: PRODUCT USED FOR UNKNOWN INDICATION
     Route: 065
     Dates: start: 20160418
  11. PARACETAMOL [Suspect]
     Active Substance: ACETAMINOPHEN
     Dosage: ()
     Route: 065
  12. MAYRA [Concomitant]
     Indication: CONTRACEPTION
     Dosage: (1)
     Route: 048
  13. VESICARE [Concomitant]
     Active Substance: SOLIFENACIN SUCCINATE
     Indication: URGE INCONTINENCE
     Route: 065
  14. ACICLOVIR [Concomitant]
     Active Substance: ACYCLOVIR
     Indication: PRODUCT USED FOR UNKNOWN INDICATION
     Route: 065
     Dates: start: 20160418
  15. FAMPYRA [Concomitant]
     Active Substance: DALFAMPRIDINE
     Indication: PRODUCT USED FOR UNKNOWN INDICATION
     Route: 065
  16. REKAWAN [Concomitant]
     Active Substance: POTASSIUM CHLORIDE
     Indication: PRODUCT USED FOR UNKNOWN INDICATION
     Dosage: ()
     Route: 065
     Dates: start: 20160418
  17. RANITIDINE. [Concomitant]
     Active Substance: RANITIDINE
     Indication: PROPHYLAXIS
     Dosage: DOSAGE: 1-0-0 (1)
     Route: 042
     Dates: start: 20160418, end: 20160420

REACTIONS (25)
  - Nausea [Unknown]
  - Infusion related reaction [Unknown]
  - Heart rate decreased [Unknown]
  - Cerebral ventricular rupture [Unknown]
  - Brain oedema [Unknown]
  - Mydriasis [Unknown]
  - Headache [Recovered/Resolved]
  - Blood disorder [Unknown]
  - Vasculitis necrotising [Fatal]
  - Blood pressure increased [Unknown]
  - Hypertension [Fatal]
  - Organ failure [Fatal]
  - Brain death [Unknown]
  - Bradycardia [Unknown]
  - Acute disseminated encephalomyelitis [Unknown]
  - Intracranial pressure increased [Unknown]
  - Cerebral hypoperfusion [Unknown]
  - Cerebral haemorrhage [Fatal]
  - Loss of consciousness [Fatal]
  - Feeling hot [Unknown]
  - Hydrocephalus [Unknown]
  - Cytokine storm [Unknown]
  - Vomiting [Unknown]
  - Chronic fatigue syndrome [Unknown]
  - Seizure [Unknown]

NARRATIVE: CASE EVENT DATE: 201604
